FAERS Safety Report 7009144-1 (Version None)
Quarter: 2010Q3

REPORT INFORMATION
  Report Type: 
  Country: None (occurrence: None)
  Receive Date: 20100923
  Receipt Date: 20100914
  Transmission Date: 20110219
  Serious: Yes (Hospitalization)
  Sender: FDA-Public Use
  Company Number: KR-JNJFOC-20100900584

PATIENT
  Age: 69 Year
  Sex: Female

DRUGS (5)
  1. DURAGESIC-100 [Suspect]
     Indication: PAIN MANAGEMENT
     Route: 062
  2. DURAGESIC-100 [Suspect]
     Route: 062
  3. DURAGESIC-100 [Suspect]
     Route: 062
  4. MOTILIUM M [Concomitant]
     Indication: ANTIEMETIC SUPPORTIVE CARE
     Route: 048
  5. MOTILIUM M [Concomitant]
     Route: 048

REACTIONS (3)
  - DIZZINESS [None]
  - VOMITING [None]
  - WRONG TECHNIQUE IN DRUG USAGE PROCESS [None]
